FAERS Safety Report 9059508 (Version 2)
Quarter: 2013Q1

REPORT INFORMATION
  Report Type: Spontaneous
  Country: CA (occurrence: CA)
  Receive Date: 20130211
  Receipt Date: 20130314
  Transmission Date: 20140127
  Serious: Yes (Hospitalization, Other)
  Sender: FDA-Public Use
  Company Number: CA-ALLERGAN-1301749US

PATIENT
  Age: 24 Year
  Sex: Female

DRUGS (3)
  1. BOTOX? [Suspect]
     Indication: URINARY INCONTINENCE
     Dosage: UNK
     Dates: start: 20130124, end: 20130124
  2. CIPRO [Concomitant]
     Indication: URINARY TRACT INFECTION
     Dosage: 500 MG, QD
     Route: 048
  3. BIRTH CONTROL PILLS [Concomitant]
     Indication: CONTRACEPTION

REACTIONS (7)
  - Bladder spasm [Not Recovered/Not Resolved]
  - Pelvic pain [Not Recovered/Not Resolved]
  - Catheter site haemorrhage [Recovered/Resolved]
  - Catheter site haemorrhage [Not Recovered/Not Resolved]
  - Medical device complication [Unknown]
  - Urinary incontinence [Unknown]
  - Urinary retention [Unknown]
